FAERS Safety Report 6733089-5 (Version None)
Quarter: 2010Q2

REPORT INFORMATION
  Report Type: 
  Country: None (occurrence: None)
  Receive Date: 20100518
  Receipt Date: 20100510
  Transmission Date: 20101027
  Serious: Yes (Hospitalization)
  Sender: FDA-Public Use
  Company Number: 2010SP026155

PATIENT
  Age: 16 Year
  Sex: Male
  Weight: 62 kg

DRUGS (4)
  1. MIRTAZAPINE [Suspect]
     Indication: DRUG USE FOR UNKNOWN INDICATION
     Dosage: 30 MG;QD;PO
     Route: 048
     Dates: start: 20100328, end: 20100409
  2. LAMICTAL [Concomitant]
  3. MINOCYCLINE HYDROCHLORIDE [Concomitant]
  4. .. [Concomitant]

REACTIONS (1)
  - EPILEPSY [None]
